FAERS Safety Report 7192294-7 (Version None)
Quarter: 2010Q4

REPORT INFORMATION
  Report Type: 
  Country: None (occurrence: None)
  Receive Date: 20101223
  Receipt Date: 20100823
  Transmission Date: 20110411
  Serious: No
  Sender: FDA-Public Use
  Company Number: US-AMGEN-KDL433193

PATIENT

DRUGS (7)
  1. ENBREL [Suspect]
     Indication: PRODUCT USED FOR UNKNOWN INDICATION
     Dosage: 50 MG, 2 TIMES/WK
  2. BUDESONIDE [Concomitant]
     Dosage: 3 MG, UNK
  3. DESOGESTREL [Concomitant]
  4. CALCIUM [Concomitant]
     Dosage: UNK UNK, UNK
  5. FLAX SEED OIL [Concomitant]
  6. MULTI-VITAMINS [Concomitant]
  7. ERGOCALCIFEROL [Concomitant]
     Dosage: UNK UNK, UNK

REACTIONS (2)
  - INJECTION SITE PAIN [None]
  - PSORIASIS [None]
